FAERS Safety Report 25296747 (Version 1)
Quarter: 2025Q2

REPORT INFORMATION
  Report Type: Spontaneous
  Country: US (occurrence: US)
  Receive Date: 20250511
  Receipt Date: 20250511
  Transmission Date: 20250717
  Serious: No
  Sender: UCB
  Company Number: US-UCBSA-2024026339

PATIENT
  Sex: Female

DRUGS (1)
  1. CIMZIA [Suspect]
     Active Substance: CERTOLIZUMAB PEGOL
     Indication: Psoriasis
     Dosage: 200 MILLIGRAM, MONTHLY (QM) (ONCE MONTHS FOR 2 MONTHS, THEN EVERY OTHER MONTH)
     Route: 058

REACTIONS (2)
  - Off label use [Unknown]
  - Maternal exposure during breast feeding [Unknown]
